FAERS Safety Report 15751919 (Version 1)
Quarter: 2018Q4

REPORT INFORMATION
  Report Type: Spontaneous
  Country: MX (occurrence: MX)
  Receive Date: 20181221
  Receipt Date: 20181221
  Transmission Date: 20190205
  Serious: Yes (Other)
  Sender: FDA-Public Use
  Company Number: MX-ASTRAZENECA-2018SF68477

PATIENT
  Age: 26446 Day
  Sex: Male

DRUGS (3)
  1. IRESSA [Suspect]
     Active Substance: GEFITINIB
     Indication: LUNG NEOPLASM MALIGNANT
     Route: 048
     Dates: start: 20180901
  2. BENZAL [Interacting]
     Active Substance: BENZALKONIUM CHLORIDE
     Indication: HYPERSENSITIVITY
     Route: 061
     Dates: start: 20181001
  3. MIRTAZAPINE. [Interacting]
     Active Substance: MIRTAZAPINE
     Indication: ANTIDEPRESSANT THERAPY
     Route: 048
     Dates: start: 20181001

REACTIONS (4)
  - Drug interaction [Unknown]
  - Hypersensitivity [Not Recovered/Not Resolved]
  - Pruritus [Not Recovered/Not Resolved]
  - Insomnia [Not Recovered/Not Resolved]

NARRATIVE: CASE EVENT DATE: 20181001
